FAERS Safety Report 16543296 (Version 1)
Quarter: 2019Q3

REPORT INFORMATION
  Report Type: Spontaneous
  Country: CA (occurrence: CA)
  Receive Date: 20190709
  Receipt Date: 20190709
  Transmission Date: 20191004
  Serious: Yes (Death, Hospitalization, Other)
  Sender: FDA-Public Use
  Company Number: CA-AUROBINDO-AUR-APL-2019-038009

PATIENT

DRUGS (20)
  1. VALSARTAN. [Concomitant]
     Active Substance: VALSARTAN
     Indication: PRODUCT USED FOR UNKNOWN INDICATION
     Dosage: UNK
     Route: 065
  2. VITAMIN D3 [Concomitant]
     Active Substance: CHOLECALCIFEROL
     Indication: PRODUCT USED FOR UNKNOWN INDICATION
     Dosage: UNK
     Route: 065
  3. ESBRIET [Suspect]
     Active Substance: PIRFENIDONE
     Indication: IDIOPATHIC PULMONARY FIBROSIS
     Dosage: UNK
     Route: 048
  4. ESBRIET [Suspect]
     Active Substance: PIRFENIDONE
     Dosage: UNK, 3 EVERY 1 DAY
     Route: 048
  5. SYNTHROID [Concomitant]
     Active Substance: LEVOTHYROXINE SODIUM
     Indication: PRODUCT USED FOR UNKNOWN INDICATION
     Dosage: UNK
     Route: 065
  6. TECTA [Concomitant]
     Active Substance: PANTOPRAZOLE MAGNESIUM
     Indication: PRODUCT USED FOR UNKNOWN INDICATION
     Dosage: 40 MILLIGRAM
     Route: 065
  7. CRESTOR [Concomitant]
     Active Substance: ROSUVASTATIN CALCIUM
     Indication: PRODUCT USED FOR UNKNOWN INDICATION
     Dosage: UNK
     Route: 065
  8. ZOPLICONE [Suspect]
     Active Substance: ZOPICLONE
     Dosage: 7.5 MILLIGRAM, AS REQUIRED
     Route: 065
  9. APO-CLARITHROMYCIN [Concomitant]
     Active Substance: CLARITHROMYCIN
     Indication: PRODUCT USED FOR UNKNOWN INDICATION
     Dosage: 500 MILLIGRAM, TWO TIMES A DAY
     Route: 065
  10. ASA [Concomitant]
     Active Substance: ASPIRIN
     Indication: PRODUCT USED FOR UNKNOWN INDICATION
     Dosage: UNK
     Route: 065
  11. CLARITHROMYCIN. [Concomitant]
     Active Substance: CLARITHROMYCIN
     Indication: PRODUCT USED FOR UNKNOWN INDICATION
     Dosage: 500 MILLIGRAM, TWO TIMES A DAY
     Route: 065
  12. ESBRIET [Suspect]
     Active Substance: PIRFENIDONE
     Dosage: 267 MILLIGRAM, 3 EVERY 1 DAY
     Route: 048
  13. ESBRIET [Suspect]
     Active Substance: PIRFENIDONE
     Dosage: 801 MILLIGRAM, 3 EVERY 1 DAY
     Route: 048
  14. SERTRALINE [Suspect]
     Active Substance: SERTRALINE HYDROCHLORIDE
     Indication: NERVOUS SYSTEM DISORDER
     Dosage: 25 MILLIGRAM
     Route: 065
  15. ZOPLICONE [Suspect]
     Active Substance: ZOPICLONE
     Indication: NERVOUS SYSTEM DISORDER
     Dosage: 5 MILLIGRAM
     Route: 065
  16. EZETROL [Concomitant]
     Active Substance: EZETIMIBE
     Indication: PRODUCT USED FOR UNKNOWN INDICATION
     Dosage: UNK
     Route: 065
  17. OXYGEN. [Concomitant]
     Active Substance: OXYGEN
     Indication: PRODUCT USED FOR UNKNOWN INDICATION
     Dosage: UNK
     Route: 065
  18. ESBRIET [Suspect]
     Active Substance: PIRFENIDONE
     Dosage: UNK
     Route: 048
  19. ESBRIET [Suspect]
     Active Substance: PIRFENIDONE
     Dosage: 534 MILLIGRAM, 3 EVERY 1 DAY
     Route: 048
  20. ZANTAC [Concomitant]
     Active Substance: RANITIDINE HYDROCHLORIDE
     Indication: PRODUCT USED FOR UNKNOWN INDICATION
     Dosage: 150 MILLIGRAM, TWO TIMES A DAY
     Route: 065

REACTIONS (36)
  - Abnormal dreams [Fatal]
  - Asthenia [Fatal]
  - Nausea [Fatal]
  - Pain [Fatal]
  - Traumatic lung injury [Fatal]
  - Cough [Fatal]
  - Decreased appetite [Fatal]
  - Diarrhoea [Fatal]
  - Dyspnoea [Fatal]
  - Insomnia [Fatal]
  - Pollakiuria [Fatal]
  - Pulmonary function test decreased [Fatal]
  - Blood glucose increased [Fatal]
  - Nasopharyngitis [Fatal]
  - Respiratory failure [Fatal]
  - Tremor [Fatal]
  - Depression [Fatal]
  - Dyspepsia [Fatal]
  - Influenza [Fatal]
  - Pulmonary pain [Fatal]
  - Pyrexia [Fatal]
  - Skin atrophy [Fatal]
  - Abdominal discomfort [Fatal]
  - Urinary tract infection [Fatal]
  - Chills [Fatal]
  - Headache [Fatal]
  - Pneumothorax spontaneous [Fatal]
  - Chest discomfort [Fatal]
  - Decreased interest [Fatal]
  - Dizziness [Fatal]
  - Oxygen saturation decreased [Fatal]
  - Somnolence [Fatal]
  - Infection [Fatal]
  - Malaise [Fatal]
  - Vomiting [Fatal]
  - Rash [Fatal]
